FAERS Safety Report 24580923 (Version 1)
Quarter: 2024Q4

REPORT INFORMATION
  Report Type: Report from Study
  Country: CA (occurrence: CA)
  Receive Date: 20241105
  Receipt Date: 20241105
  Transmission Date: 20250115
  Serious: Yes (Other)
  Sender: ABBVIE
  Company Number: CA-ABBVIE-5986523

PATIENT
  Age: 54 Year
  Sex: Female

DRUGS (1)
  1. RINVOQ [Suspect]
     Active Substance: UPADACITINIB
     Indication: Psoriatic arthropathy
     Route: 048
     Dates: start: 20240401, end: 202410

REACTIONS (4)
  - Joint arthroplasty [Unknown]
  - Immunodeficiency [Unknown]
  - Suture related complication [Unknown]
  - Mammoplasty [Unknown]

NARRATIVE: CASE EVENT DATE: 20240101
